FAERS Safety Report 4964264-8 (Version None)
Quarter: 2006Q1

REPORT INFORMATION
  Report Type: 
  Country: None (occurrence: None)
  Receive Date: 20060331
  Receipt Date: 20060320
  Transmission Date: 20060701
  Serious: Yes (Hospitalization)
  Sender: FDA-Public Use
  Company Number: DE200603005706

PATIENT
  Age: 79 Year
  Sex: Female

DRUGS (14)
  1. CYMBALTA [Suspect]
     Indication: DEPRESSION
     Dosage: SEE IMAGE
     Route: 048
     Dates: start: 20051018, end: 20051019
  2. CYMBALTA [Suspect]
     Indication: DEPRESSION
     Dosage: SEE IMAGE
     Route: 048
     Dates: start: 20051020, end: 20051102
  3. CYMBALTA [Suspect]
     Indication: DEPRESSION
     Dosage: SEE IMAGE
     Route: 048
     Dates: start: 20051103, end: 20051110
  4. CYMBALTA [Suspect]
     Indication: DEPRESSION
     Dosage: SEE IMAGE
     Route: 048
     Dates: start: 20051111, end: 20051118
  5. MELPERON (MELPERONE HYDROCHLORIDE) [Concomitant]
  6. LORAZEPAM [Concomitant]
  7. BISOPROLOL [Concomitant]
  8. DELIX PLUS (HYDROCHLOROTHIAZIDE, RAMIPRIL) [Concomitant]
  9. RAMIPRIL [Concomitant]
  10. TOREM /GFR/ (TORASEMIDE) [Concomitant]
  11. GODAMED (ACETYLSALICYLIC ACID, AMINOACETIC ACID) [Concomitant]
  12. ISCOVER /GFR/ (CLOPIDOGREL SULFATE) [Concomitant]
  13. NEXIUM [Concomitant]
  14. SEROQUEL [Concomitant]

REACTIONS (6)
  - CIRCULATORY COLLAPSE [None]
  - DRUG INTERACTION [None]
  - FALL [None]
  - HYPOCHLORAEMIA [None]
  - HYPOKALAEMIA [None]
  - HYPONATRAEMIA [None]
